FAERS Safety Report 7954795-0 (Version None)
Quarter: 2011Q4

REPORT INFORMATION
  Report Type: 
  Country: None (occurrence: None)
  Receive Date: 20111202
  Receipt Date: 20111117
  Transmission Date: 20120403
  Serious: Yes (Hospitalization)
  Sender: FDA-Public Use
  Company Number: JP-ROCHE-801505

PATIENT
  Sex: Female
  Weight: 50 kg

DRUGS (7)
  1. COPEGUS [Suspect]
     Indication: HEPATITIS C
     Route: 048
     Dates: start: 20110303, end: 20110817
  2. EPINAZION [Concomitant]
     Route: 048
  3. RESTAMIN [Concomitant]
     Route: 062
  4. TMC435 (NS3/4A PROTEASE INHIBITOR) [Suspect]
     Indication: HEPATITIS C
     Dosage: DOSAGE IS UNCERTAIN., DOSE FORM: PERORAL AGENT
     Route: 047
     Dates: start: 20110303, end: 20110526
  5. PEGINTERFERON ALFA-2A [Suspect]
     Indication: HEPATITIS C
     Route: 058
     Dates: start: 20110303, end: 20110810
  6. WHITE PETROLATUM [Concomitant]
     Route: 062
  7. AMLODIPINE [Suspect]
     Indication: PRODUCT USED FOR UNKNOWN INDICATION
     Route: 048

REACTIONS (1)
  - CEREBRAL HAEMORRHAGE [None]
